FAERS Safety Report 4299237-4 (Version None)
Quarter: 2004Q1

REPORT INFORMATION
  Report Type: 
  Country: None (occurrence: None)
  Receive Date: 20040217
  Receipt Date: 20040210
  Transmission Date: 20041129
  Serious: Yes (Death, Life-Threatening, Hospitalization)
  Sender: FDA-Public Use
  Company Number: 0400005EN0020P

PATIENT
  Age: 16 Year
  Sex: Female

DRUGS (7)
  1. ONCASPAR [Suspect]
     Indication: ACUTE LYMPHOCYTIC LEUKAEMIA
     Dosage: 1540 IU IV
     Route: 042
     Dates: start: 20010914, end: 20010914
  2. VINCRISTINE [Concomitant]
  3. GRANISETRON [Concomitant]
  4. CIPROBAY [Concomitant]
  5. DIFLUCAN [Concomitant]
  6. NEUPOGEN [Concomitant]
  7. POTASSIUM CHLORIDE [Concomitant]

REACTIONS (11)
  - ACUTE RESPIRATORY DISTRESS SYNDROME [None]
  - BRAIN OEDEMA [None]
  - COAGULOPATHY [None]
  - FUNGAEMIA [None]
  - GRANULOCYTOPENIA [None]
  - ILEUS PARALYTIC [None]
  - LACTIC ACIDOSIS [None]
  - MULTI-ORGAN FAILURE [None]
  - PANCREATITIS ACUTE [None]
  - RENAL FAILURE ACUTE [None]
  - SEPSIS [None]
